FAERS Safety Report 11363479 (Version 2)
Quarter: 2015Q4

REPORT INFORMATION
  Report Type: Spontaneous
  Country: IT (occurrence: IT)
  Receive Date: 20150811
  Receipt Date: 20151012
  Transmission Date: 20160304
  Serious: Yes (Hospitalization)
  Sender: FDA-Public Use
  Company Number: IT-ACCORD-032786

PATIENT
  Age: 54 Year
  Sex: Female

DRUGS (1)
  1. DOCETAXEL ACCORD [Suspect]
     Active Substance: DOCETAXEL
     Indication: LUNG ADENOCARCINOMA
     Dosage: STRENGTH: 80MG/4ML
     Route: 042
     Dates: start: 20150525, end: 20150525

REACTIONS (3)
  - Dyskinesia [Recovering/Resolving]
  - Urinary incontinence [Recovering/Resolving]
  - Balance disorder [Recovering/Resolving]

NARRATIVE: CASE EVENT DATE: 20150610
